FAERS Safety Report 20990850 (Version 1)
Quarter: 2022Q2

REPORT INFORMATION
  Report Type: Spontaneous
  Country: JP (occurrence: JP)
  Receive Date: 20220622
  Receipt Date: 20220622
  Transmission Date: 20220721
  Serious: Yes (Hospitalization)
  Sender: FDA-Public Use
  Company Number: JP-ADVANZ PHARMA-202206003670

PATIENT

DRUGS (1)
  1. ZONISAMIDE [Suspect]
     Active Substance: ZONISAMIDE
     Indication: Parkinson^s disease
     Dosage: 50 MG, QD (TRERIEF ORODISPERSIBLE TABLET)
     Route: 048

REACTIONS (2)
  - Gastrostomy [Unknown]
  - Dysphagia [Unknown]
